FAERS Safety Report 22626038 (Version 1)
Quarter: 2023Q2

REPORT INFORMATION
  Report Type: Report from Study
  Country: JP (occurrence: JP)
  Receive Date: 20230621
  Receipt Date: 20230621
  Transmission Date: 20230722
  Serious: Yes (Hospitalization)
  Sender: FDA-Public Use
  Company Number: JP-GSKJP-JP2023JPN046162

PATIENT
  Sex: Female

DRUGS (23)
  1. BOTULINUM TOXIN TYPE A [Suspect]
     Active Substance: BOTULINUM TOXIN TYPE A
     Indication: Hypertonic bladder
     Dosage: TIME INTERVAL: AS NECESSARY: UNITS
     Route: 030
     Dates: start: 20211206, end: 20211206
  2. TOVIAZ [Concomitant]
     Active Substance: FESOTERODINE FUMARATE
     Indication: Hypertonic bladder
     Dosage: 10 UNK
  3. HIRUDOID CREAM [Concomitant]
     Indication: Product used for unknown indication
     Dosage: DOSE DESC: UNK
  4. EZETIMIBE [Concomitant]
     Active Substance: EZETIMIBE
     Indication: Product used for unknown indication
     Dosage: DOSE DESC: UNK
  5. BISOPROLOL FUMARATE [Concomitant]
     Active Substance: BISOPROLOL FUMARATE
     Indication: Product used for unknown indication
     Dosage: DOSE DESC: 10 UNK
  6. CARBAZOCHROME SODIUM SULFONATE [Concomitant]
     Active Substance: CARBAZOCHROME SODIUM SULFONATE
     Indication: Prophylaxis
     Dosage: DOSE DESC: UNK
  7. ICOSAPENT ETHYL [Concomitant]
     Active Substance: ICOSAPENT ETHYL
     Indication: Product used for unknown indication
     Dosage: DOSE DESC: UNK
     Route: 048
  8. HYALEIN OPHTHALMIC SOLUTION [Concomitant]
     Indication: Product used for unknown indication
     Dosage: DOSE DESC: UNK
  9. ALESION OPHTHALMIC SOLUTION 0.05% [Concomitant]
     Indication: Product used for unknown indication
     Dosage: DOSE DESC: UNK
  10. LORAZEPAM [Concomitant]
     Active Substance: LORAZEPAM
     Indication: Product used for unknown indication
     Dosage: DOSE DESC: 10 UNK
  11. LUNESTA [Concomitant]
     Active Substance: ESZOPICLONE
     Indication: Product used for unknown indication
     Dosage: DOSE DESC: UNK
  12. PAXIL [Concomitant]
     Active Substance: PAROXETINE HYDROCHLORIDE
     Indication: Product used for unknown indication
     Dosage: DOSE DESC: UNK
  13. CINAL [Concomitant]
     Indication: Product used for unknown indication
     Dosage: DOSE DESC: 10 UNK
  14. FURSULTIAMINE\HYDROXOCOBALAMIN ACETATE\PYRIDOXAL PHOSPHATE\RIBOFLAVIN [Concomitant]
     Active Substance: FURSULTIAMINE\HYDROXOCOBALAMIN ACETATE\PYRIDOXAL PHOSPHATE\RIBOFLAVIN
     Indication: Product used for unknown indication
     Dosage: DOSE DESC: UNK
  15. SENNOSIDES [Concomitant]
     Active Substance: SENNOSIDES
     Indication: Product used for unknown indication
     Dosage: UNK
  16. DIETARY SUPPLEMENT\PROBIOTICS [Concomitant]
     Active Substance: DIETARY SUPPLEMENT\PROBIOTICS NOS
     Indication: Product used for unknown indication
     Dosage: DOSE DESC: UNK
  17. MAGNESIUM OXIDE [Concomitant]
     Active Substance: MAGNESIUM OXIDE
     Indication: Product used for unknown indication
     Dosage: UNK
  18. CLOTRIMAZOLE [Concomitant]
     Active Substance: CLOTRIMAZOLE
     Indication: Product used for unknown indication
     Dosage: UNK
  19. POSTERISAN [Concomitant]
     Indication: Product used for unknown indication
     Dosage: UNK
  20. WHITE PETROLATUM [Concomitant]
     Active Substance: PETROLATUM
     Indication: Product used for unknown indication
     Dosage: 3.2 UNK
  21. EURAX [Concomitant]
     Active Substance: CROTAMITON
     Indication: Product used for unknown indication
     Dosage: UNK
  22. ALPRAZOLAM [Concomitant]
     Active Substance: ALPRAZOLAM
     Indication: Product used for unknown indication
     Dosage: UNK
  23. KETOPROFEN [Concomitant]
     Active Substance: KETOPROFEN
     Indication: Product used for unknown indication
     Dosage: UNK

REACTIONS (3)
  - Pelvic organ prolapse [Recovered/Resolved]
  - Condition aggravated [Recovered/Resolved]
  - Dermatitis [Recovered/Resolved]

NARRATIVE: CASE EVENT DATE: 20220415
